FAERS Safety Report 12639421 (Version 1)
Quarter: 2016Q3

REPORT INFORMATION
  Report Type: Spontaneous
  Country: US (occurrence: None)
  Receive Date: 20160809
  Receipt Date: 20160809
  Transmission Date: 20161109
  Serious: Yes (Death)
  Sender: FDA-Public Use
  Company Number: None

PATIENT
  Age: 31 Year
  Sex: Male

DRUGS (4)
  1. FENTANYL. [Suspect]
     Active Substance: FENTANYL
  2. MITRAGYNINE (KRATOM) [Suspect]
     Active Substance: MITRAGYNINE
  3. CLONAZEPAM. [Suspect]
     Active Substance: CLONAZEPAM
  4. ALPRAZOLAM. [Suspect]
     Active Substance: ALPRAZOLAM

REACTIONS (8)
  - Toxicity to various agents [None]
  - Drug screen positive [None]
  - Pulmonary congestion [None]
  - Oedema peripheral [None]
  - Urinary retention [None]
  - Accidental death [None]
  - Respiratory arrest [None]
  - Left ventricular hypertrophy [None]

NARRATIVE: CASE EVENT DATE: 20150423
